FAERS Safety Report 6852128-4 (Version None)
Quarter: 2010Q3

REPORT INFORMATION
  Report Type: 
  Country: None (occurrence: None)
  Receive Date: 20100717
  Receipt Date: 20071107
  Transmission Date: 20110219
  Serious: No
  Sender: FDA-Public Use
  Company Number: US-PFIZER INC-2007094076

PATIENT
  Sex: Female

DRUGS (8)
  1. CHANTIX [Suspect]
     Indication: SMOKING CESSATION THERAPY
     Route: 048
     Dates: start: 20071013
  2. DEPAKOTE [Concomitant]
  3. DOXEPIN HCL [Concomitant]
  4. RISPERDAL [Concomitant]
  5. COMBIVENT [Concomitant]
  6. SYNTHROID [Concomitant]
  7. LEXAPRO [Concomitant]
  8. VITAMINS [Concomitant]

REACTIONS (2)
  - DRUG INTOLERANCE [None]
  - FATIGUE [None]
